FAERS Safety Report 24669196 (Version 1)
Quarter: 2024Q4

REPORT INFORMATION
  Report Type: Spontaneous
  Country: US (occurrence: US)
  Receive Date: 20241127
  Receipt Date: 20241127
  Transmission Date: 20250115
  Serious: No
  Sender: GLENMARK
  Company Number: US-GLENMARK PHARMACEUTICALS-2024GMK091768

PATIENT

DRUGS (3)
  1. AZELAIC ACID [Suspect]
     Active Substance: AZELAIC ACID
     Indication: Rosacea
     Dosage: UNK (USING THE MEDICATION APPROXIMATELY THREE YEARS AGO)
     Route: 061
  2. AZELAIC ACID [Suspect]
     Active Substance: AZELAIC ACID
     Dosage: UNK, BID (NEW TUBE APPLYING IT TOPICALLY ON HER FACE TWICE A DAY)
     Route: 061
     Dates: start: 20240527
  3. HYDROQUINONE [Concomitant]
     Active Substance: HYDROQUINONE
     Indication: Skin hyperpigmentation
     Dosage: UNK, QD (STARTED USING IT TWO TO THREE YEARS AGO)
     Route: 061

REACTIONS (5)
  - Application site discomfort [Recovered/Resolved]
  - Application site pain [Recovered/Resolved]
  - Product use issue [Unknown]
  - Product quality issue [Unknown]
  - Product physical consistency issue [Unknown]
